FAERS Safety Report 8171935-1 (Version None)
Quarter: 2012Q1

REPORT INFORMATION
  Report Type: 
  Country: None (occurrence: None)
  Receive Date: 20120228
  Receipt Date: 20120216
  Transmission Date: 20120608
  Serious: Yes (Other)
  Sender: FDA-Public Use
  Company Number: FR-ROCHE-1043294

PATIENT
  Sex: Male

DRUGS (3)
  1. LUCENTIS [Suspect]
     Indication: AGE-RELATED MACULAR DEGENERATION
     Route: 050
     Dates: start: 20111102
  2. LUCENTIS [Suspect]
     Route: 050
     Dates: start: 20111207
  3. LUCENTIS [Suspect]
     Route: 050
     Dates: start: 20120111

REACTIONS (2)
  - RASH ERYTHEMATOUS [None]
  - INSOMNIA [None]
